FAERS Safety Report 4489473-6 (Version None)
Quarter: 2004Q4

REPORT INFORMATION
  Report Type: 
  Country: None (occurrence: None)
  Receive Date: 20041101
  Receipt Date: 20040714
  Transmission Date: 20050328
  Serious: Yes (Other)
  Sender: FDA-Public Use
  Company Number: PHBS2004JP09406

PATIENT
  Age: 54 Year
  Sex: Male
  Weight: 56 kg

DRUGS (5)
  1. METOPIRONE [Suspect]
     Indication: HYPERADRENALISM
     Dosage: 750 MG/D
     Route: 048
     Dates: start: 20010601
  2. GLIMICRON [Concomitant]
     Dosage: 20 MG/D
     Route: 048
     Dates: start: 20010601
  3. NORVASC [Concomitant]
     Dosage: 5 MG/D
     Route: 048
     Dates: start: 20010601
  4. LIPOVAS [Concomitant]
     Dosage: 5 MG/D
     Route: 048
     Dates: start: 20010601
  5. MUCOSTA [Concomitant]
     Dosage: 300 MG/D
     Route: 048
     Dates: start: 20010601

REACTIONS (2)
  - BLOOD CORTICOSTERONE INCREASED [None]
  - HYPOKALAEMIA [None]
